FAERS Safety Report 9210052 (Version 1)
Quarter: 2012Q4

REPORT INFORMATION
  Report Type: 
  Country: GB (occurrence: GB)
  Receive Date: 20120903
  Receipt Date: 20120903
  Transmission Date: 20130627
  Serious: Yes (Hospitalization)
  Sender: FDA-Public Use
  Company Number: GB-TEVA-356578ISR

PATIENT

DRUGS (1)
  1. COPAXONE [Suspect]
     Dosage: 20 Milligram Daily;
     Route: 058

REACTIONS (1)
  - Mental disorder [Unknown]
